FAERS Safety Report 20847411 (Version 1)
Quarter: 2022Q2

REPORT INFORMATION
  Report Type: Spontaneous
  Country: US (occurrence: None)
  Receive Date: 20220519
  Receipt Date: 20220519
  Transmission Date: 20220721
  Serious: Yes (Disabling)
  Sender: FDA-Public Use
  Company Number: US-ROCHE-3096268

PATIENT
  Age: 13 Year
  Sex: Male
  Weight: 35.6 kg

DRUGS (6)
  1. CELLCEPT [Suspect]
     Active Substance: MYCOPHENOLATE MOFETIL
     Indication: Renal transplant
     Route: 065
     Dates: start: 20210623
  2. EPOGEN [Suspect]
     Active Substance: ERYTHROPOIETIN
     Indication: Anaemia
     Dosage: MOST RECENT DOSE ON 16/MAR/2022
     Route: 065
     Dates: start: 20211103
  3. EPOGEN [Suspect]
     Active Substance: ERYTHROPOIETIN
     Route: 042
     Dates: start: 20211122
  4. EPOGEN [Suspect]
     Active Substance: ERYTHROPOIETIN
     Route: 042
  5. TACROLIMUS [Suspect]
     Active Substance: TACROLIMUS
     Indication: Renal transplant
     Route: 065
     Dates: start: 20200720
  6. FOLIC ACID [Concomitant]
     Active Substance: FOLIC ACID
     Dates: start: 20220221

REACTIONS (3)
  - Off label use [Unknown]
  - Therapeutic response decreased [Unknown]
  - Refractory cytopenia with unilineage dysplasia [Not Recovered/Not Resolved]

NARRATIVE: CASE EVENT DATE: 20211101
